FAERS Safety Report 11320022 (Version 1)
Quarter: 2015Q3

REPORT INFORMATION
  Report Type: Spontaneous
  Country: US (occurrence: None)
  Receive Date: 20150728
  Receipt Date: 20150728
  Transmission Date: 20151125
  Serious: No
  Sender: FDA-Public Use
  Company Number: None

PATIENT
  Age: 75 Year
  Sex: Male

DRUGS (2)
  1. CEFEPIME [Suspect]
     Active Substance: CEFEPIME HYDROCHLORIDE
     Indication: FEBRILE NEUTROPENIA
     Route: 042
     Dates: start: 20141022
  2. CLOFARABINE [Suspect]
     Active Substance: CLOFARABINE
     Dosage: 30 MG/M2  DAILY  IV
     Route: 042

REACTIONS (2)
  - Rash [None]
  - Pyrexia [None]

NARRATIVE: CASE EVENT DATE: 20141111
